FAERS Safety Report 18691732 (Version 1)
Quarter: 2021Q1

REPORT INFORMATION
  Report Type: Spontaneous
  Country: FR (occurrence: FR)
  Receive Date: 20210102
  Receipt Date: 20210102
  Transmission Date: 20210419
  Serious: Yes (Death, Other)
  Sender: FDA-Public Use
  Company Number: FR-AUROBINDO-AUR-APL-2020-063914

PATIENT
  Age: 14 Year
  Sex: Male

DRUGS (1)
  1. TRAMADOL. [Suspect]
     Active Substance: TRAMADOL
     Indication: PRODUCT USED FOR UNKNOWN INDICATION
     Dosage: UNK (ENTRE 1.6 G ET 2 G)
     Route: 048
     Dates: start: 202011, end: 202011

REACTIONS (4)
  - Drug abuse [Fatal]
  - Cardiomegaly [Fatal]
  - Pulmonary oedema [Fatal]
  - Brain oedema [Fatal]

NARRATIVE: CASE EVENT DATE: 202011
